FAERS Safety Report 7799169-0 (Version None)
Quarter: 2011Q4

REPORT INFORMATION
  Report Type: 
  Country: None (occurrence: None)
  Receive Date: 20111004
  Receipt Date: 20111004
  Transmission Date: 20120403
  Serious: No
  Sender: FDA-Public Use
  Company Number: None

PATIENT

DRUGS (2)
  1. CELLCEPT [Suspect]
  2. IMURAN [Suspect]

REACTIONS (1)
  - DERMATITIS ALLERGIC [None]
